FAERS Safety Report 25852756 (Version 1)
Quarter: 2025Q3

REPORT INFORMATION
  Report Type: Spontaneous
  Country: US (occurrence: None)
  Receive Date: 20250925
  Receipt Date: 20250925
  Transmission Date: 20251020
  Serious: Yes (Other)
  Sender: FDA-CTU
  Company Number: None

PATIENT
  Age: 30 Year
  Sex: Female
  Weight: 71.1 kg

DRUGS (13)
  1. AIMOVIG [Suspect]
     Active Substance: ERENUMAB-AOOE
  2. BOTOX [Concomitant]
     Active Substance: ONABOTULINUMTOXINA
  3. HYDROXYCHLOROQUINE [Suspect]
     Active Substance: HYDROXYCHLOROQUINE
  4. FOLIC ACID [Concomitant]
     Active Substance: FOLIC ACID
  5. FAMOTIDINE [Concomitant]
     Active Substance: FAMOTIDINE
  6. fuircet [Concomitant]
  7. smo orthotics [Concomitant]
  8. knee brace [Concomitant]
  9. cephalexican antibiotic [Concomitant]
  10. PREDNISONE [Concomitant]
     Active Substance: PREDNISONE
  11. tri sprintec birth controls [Concomitant]
  12. IBUPROFEN [Concomitant]
     Active Substance: IBUPROFEN
  13. TYLENOL [Concomitant]
     Active Substance: ACETAMINOPHEN

REACTIONS (1)
  - Pregnancy on contraceptive [None]

NARRATIVE: CASE EVENT DATE: 20250724
